FAERS Safety Report 4642233-5 (Version None)
Quarter: 2005Q2

REPORT INFORMATION
  Report Type: 
  Country: None (occurrence: None)
  Receive Date: 20050422
  Receipt Date: 20040910
  Transmission Date: 20051028
  Serious: Yes (Hospitalization)
  Sender: FDA-Public Use
  Company Number: JP-BRISTOL-MYERS SQUIBB COMPANY-12705836

PATIENT
  Age: 22 Year
  Sex: Male

DRUGS (9)
  1. EFAVIRENZ CAPS [Suspect]
     Indication: HIV INFECTION
     Route: 048
     Dates: start: 20000518, end: 20020424
  2. ZERIT [Suspect]
     Indication: HIV INFECTION
     Route: 048
     Dates: start: 20000117, end: 20020424
  3. ZIAGEN [Suspect]
     Indication: HIV INFECTION
     Route: 048
     Dates: start: 20000518, end: 20020424
  4. VIRACEPT [Suspect]
     Indication: HIV INFECTION
     Dosage: 2250 MG 17-JAN-200 - 18-MAY-2000.
     Route: 048
     Dates: start: 20000518, end: 20020424
  5. PREDNISOLONE [Suspect]
     Indication: NEPHROTIC SYNDROME
     Dosage: 40 MG DAILY UNTIL 04-APR-2002
     Route: 048
     Dates: end: 20020424
  6. ALBUMIN (HUMAN) [Concomitant]
     Dates: start: 20020419, end: 20020421
  7. FACTOR IX COMPLEX [Concomitant]
     Dates: start: 20020415, end: 20020417
  8. GASTER [Concomitant]
     Dates: start: 20020405, end: 20020424
  9. LASIX [Concomitant]
     Dates: start: 20020419, end: 20020424

REACTIONS (2)
  - RENAL IMPAIRMENT [None]
  - WHITE BLOOD CELL COUNT ABNORMAL [None]
